FAERS Safety Report 24792186 (Version 2)
Quarter: 2025Q1

REPORT INFORMATION
  Report Type: Report from Study
  Country: US (occurrence: US)
  Receive Date: 20241231
  Receipt Date: 20250122
  Transmission Date: 20250408
  Serious: Yes (Death, Other)
  Sender: TAKEDA
  Company Number: US-TAKEDA-2024TUS129144

PATIENT
  Age: 74 Year
  Sex: Male

DRUGS (1)
  1. FRUQUINTINIB [Suspect]
     Active Substance: FRUQUINTINIB
     Indication: Colon cancer

REACTIONS (7)
  - Death [Fatal]
  - Metastases to bone [Unknown]
  - Hiccups [Recovered/Resolved]
  - Hypophagia [Unknown]
  - Pain [Unknown]
  - Gastrooesophageal reflux disease [Unknown]
  - Hypersomnia [Unknown]

NARRATIVE: CASE EVENT DATE: 20250108
